FAERS Safety Report 6666945-7 (Version None)
Quarter: 2010Q2

REPORT INFORMATION
  Report Type: 
  Country: None (occurrence: None)
  Receive Date: 20100405
  Receipt Date: 20100324
  Transmission Date: 20101027
  Serious: Yes (Other)
  Sender: FDA-Public Use
  Company Number: PHHY2010US18693

PATIENT
  Sex: Male

DRUGS (3)
  1. TRILEPTAL [Suspect]
  2. SINGULAIR [Concomitant]
  3. CLARINEX                                /DEN/ [Concomitant]

REACTIONS (3)
  - ASTHMA [None]
  - IMMUNOSUPPRESSION [None]
  - INFECTION [None]
